FAERS Safety Report 6164308-4 (Version None)
Quarter: 2009Q2

REPORT INFORMATION
  Report Type: 
  Country: None (occurrence: None)
  Receive Date: 20090422
  Receipt Date: 20090407
  Transmission Date: 20091009
  Serious: Yes (Other)
  Sender: FDA-Public Use
  Company Number: JP-PFIZER INC-2009185243

PATIENT

DRUGS (2)
  1. MIGLITOL [Suspect]
     Dosage: 100 MG, 1X/DAY
     Route: 048
     Dates: start: 20070323, end: 20070420
  2. MELBIN [Suspect]
     Dosage: 500 MG, 1X/DAY
     Route: 048

REACTIONS (3)
  - CIRCULATORY COLLAPSE [None]
  - HYPOGLYCAEMIA [None]
  - LOSS OF CONSCIOUSNESS [None]
